FAERS Safety Report 9418020 (Version 1)
Quarter: 2013Q3

REPORT INFORMATION
  Report Type: Spontaneous
  Country: US (occurrence: US)
  Receive Date: 20130724
  Receipt Date: 20130724
  Transmission Date: 20140515
  Serious: No
  Sender: FDA-Public Use
  Company Number: US-009507513-1307USA004589

PATIENT
  Sex: Male

DRUGS (2)
  1. DULERA [Suspect]
     Route: 055
  2. SPIRIVA [Concomitant]

REACTIONS (4)
  - Drug dose omission [Unknown]
  - Wrong technique in drug usage process [Unknown]
  - Adverse event [Unknown]
  - Therapeutic response decreased [Unknown]
